FAERS Safety Report 14444690 (Version 1)
Quarter: 2018Q1

REPORT INFORMATION
  Report Type: Spontaneous
  Country: ES (occurrence: ES)
  Receive Date: 20180126
  Receipt Date: 20180126
  Transmission Date: 20180509
  Serious: Yes (Hospitalization)
  Sender: FDA-Public Use
  Company Number: ES-009507513-1801ESP008380

PATIENT
  Age: 73 Year
  Sex: Female
  Weight: 77.7 kg

DRUGS (4)
  1. SIMVASTATIN. [Suspect]
     Active Substance: SIMVASTATIN
     Indication: HYPERCHOLESTEROLAEMIA
     Dosage: 10 MG, QD (1 DAILY)
     Route: 048
     Dates: start: 20170614, end: 20171018
  2. SIMVASTATIN. [Suspect]
     Active Substance: SIMVASTATIN
     Dosage: 10 MG, QD (1 DAILY)
     Route: 048
     Dates: start: 20130101, end: 20170417
  3. LEVOFLOXACIN. [Suspect]
     Active Substance: LEVOFLOXACIN
     Indication: BRONCHITIS
     Dosage: 500 MG DAILY FOR 7 DAYS
     Route: 048
     Dates: start: 201710, end: 201710
  4. FOSTER [Suspect]
     Active Substance: BECLOMETHASONE\FORMOTEROL
     Indication: BRONCHITIS
     Dosage: 100/6 MICROGRAMS/PER ACTUATION PRESSURIZED INHALATION SOLUTION, TWICE A DAY
     Route: 055
     Dates: start: 20170710, end: 20171018

REACTIONS (1)
  - Neutropenia [Recovered/Resolved]

NARRATIVE: CASE EVENT DATE: 20171016
